FAERS Safety Report 12330887 (Version 3)
Quarter: 2017Q3

REPORT INFORMATION
  Report Type: Spontaneous
  Country: US (occurrence: US)
  Receive Date: 20160504
  Receipt Date: 20170707
  Transmission Date: 20171127
  Serious: Yes (Hospitalization)
  Sender: FDA-Public Use
  Company Number: PHEH2016US010603

PATIENT
  Age: 87 Year
  Sex: Male

DRUGS (1)
  1. TASIGNA [Suspect]
     Active Substance: NILOTINIB
     Indication: CHRONIC MYELOID LEUKAEMIA
     Dosage: 300 MG, BID
     Route: 048
     Dates: start: 20140408

REACTIONS (6)
  - Cerebral haemorrhage [Unknown]
  - Cerebrovascular accident [Unknown]
  - Vomiting [Unknown]
  - Infection [Unknown]
  - Fall [Unknown]
  - Aphasia [Unknown]

NARRATIVE: CASE EVENT DATE: 20170628
